FAERS Safety Report 17673723 (Version 2)
Quarter: 2021Q1

REPORT INFORMATION
  Report Type: Spontaneous
  Country: IT (occurrence: IT)
  Receive Date: 20200416
  Receipt Date: 20210121
  Transmission Date: 20210419
  Serious: Yes (Death, Hospitalization)
  Sender: FDA-Public Use
  Company Number: IT-TEVA-2020-IT-1222725

PATIENT
  Age: 78 Year
  Sex: Female

DRUGS (4)
  1. PREDNISONE. [Suspect]
     Active Substance: PREDNISONE
     Indication: RHEUMATOID ARTHRITIS
     Dosage: 10 MILLIGRAM DAILY;
     Route: 048
  2. PREDNISONE. [Suspect]
     Active Substance: PREDNISONE
     Dosage: 5 MILLIGRAM DAILY;
     Route: 048
  3. CEFAZOLIN [Concomitant]
     Active Substance: CEFAZOLIN
     Indication: ANTIBIOTIC PROPHYLAXIS
     Dosage: 2 GRAM DAILY;
     Route: 065
  4. METHOTREXATE. [Concomitant]
     Active Substance: METHOTREXATE
     Route: 065

REACTIONS (9)
  - Cardiac arrest [Fatal]
  - Hypochromic anaemia [Unknown]
  - Oxygen saturation decreased [Recovering/Resolving]
  - Atelectasis [Not Recovered/Not Resolved]
  - Pleural effusion [Recovered/Resolved]
  - Ejection fraction decreased [Unknown]
  - Endocarditis bacterial [Not Recovered/Not Resolved]
  - Normocytic anaemia [Unknown]
  - Left ventricular hypertrophy [Unknown]
